FAERS Safety Report 24133776 (Version 1)
Quarter: 2024Q3

REPORT INFORMATION
  Report Type: Spontaneous
  Country: US (occurrence: US)
  Receive Date: 20240724
  Receipt Date: 20240724
  Transmission Date: 20241017
  Serious: Yes (Hospitalization, Other)
  Sender: TAKEDA
  Company Number: US-TAKEDA-2024TUS072133

PATIENT
  Sex: Female

DRUGS (2)
  1. .ALPHA.1-PROTEINASE INHIBITOR HUMAN [Suspect]
     Active Substance: .ALPHA.1-PROTEINASE INHIBITOR HUMAN
     Indication: Product used for unknown indication
     Dosage: 3810 MILLIGRAM, 1/WEEK
     Route: 042
     Dates: start: 20190812
  2. .ALPHA.1-PROTEINASE INHIBITOR HUMAN [Suspect]
     Active Substance: .ALPHA.1-PROTEINASE INHIBITOR HUMAN
     Indication: Product used for unknown indication
     Dosage: 3810 MILLIGRAM, 1/WEEK
     Route: 042
     Dates: start: 20190812

REACTIONS (3)
  - Urinary tract infection [Unknown]
  - Spinal compression fracture [Unknown]
  - Diarrhoea [Unknown]
